FAERS Safety Report 20088556 (Version 2)
Quarter: 2022Q1

REPORT INFORMATION
  Report Type: Spontaneous
  Country: US (occurrence: US)
  Receive Date: 20211119
  Receipt Date: 20220302
  Transmission Date: 20220424
  Serious: Yes (Other)
  Sender: FDA-Public Use
  Company Number: US-JNJFOC-20210916250

PATIENT
  Age: 55 Year
  Sex: Female

DRUGS (2)
  1. ZYRTEC [Suspect]
     Active Substance: CETIRIZINE HYDROCHLORIDE
     Indication: Hypersensitivity
     Dosage: 10 MG (ONE HALF TABLET , TWICE A DAY AS DIRECTED BY DOCTOR
     Route: 048
     Dates: start: 20210902, end: 20210902
  2. AVAPRO [Concomitant]
     Active Substance: IRBESARTAN
     Indication: Hypertension
     Dosage: TAKING FOR PAST 14 YEARS
     Route: 065

REACTIONS (4)
  - Throat tightness [Recovering/Resolving]
  - Mast cell activation syndrome [Not Recovered/Not Resolved]
  - Hypersensitivity [Recovering/Resolving]
  - Pruritus [Recovering/Resolving]

NARRATIVE: CASE EVENT DATE: 20210902
